FAERS Safety Report 26188158 (Version 1)
Quarter: 2025Q4

REPORT INFORMATION
  Report Type: Spontaneous
  Country: GB (occurrence: GB)
  Receive Date: 20251222
  Receipt Date: 20251222
  Transmission Date: 20260117
  Serious: Yes (Other)
  Sender: PFIZER
  Company Number: GB-AMGEN-GBRSP2025236347

PATIENT
  Age: 11 Year
  Sex: Male
  Weight: 28 kg

DRUGS (4)
  1. RITUXIMAB [Suspect]
     Active Substance: RITUXIMAB
     Indication: Alloimmune haemolytic anaemia
     Dosage: UNK
  2. ARANESP [Suspect]
     Active Substance: DARBEPOETIN ALFA
     Indication: Anaemia
     Dosage: UNK
     Dates: start: 202110
  3. ARANESP [Suspect]
     Active Substance: DARBEPOETIN ALFA
     Dosage: 60 UG, WEEKLY (60 MICROGRAM, QWK)
     Route: 042
     Dates: end: 202204
  4. TACROLIMUS [Concomitant]
     Active Substance: TACROLIMUS
     Indication: Alloimmune haemolytic anaemia
     Dosage: UNK

REACTIONS (3)
  - End stage renal disease [Unknown]
  - Therapeutic response decreased [Unknown]
  - Reticulocytopenia [Unknown]

NARRATIVE: CASE EVENT DATE: 20220401
